FAERS Safety Report 5395172-9 (Version None)
Quarter: 2007Q3

REPORT INFORMATION
  Report Type: 
  Country: None (occurrence: None)
  Receive Date: 20070724
  Receipt Date: 20070710
  Transmission Date: 20080115
  Serious: Yes (Hospitalization)
  Sender: FDA-Public Use
  Company Number: DE-PFIZER INC-2006066826

PATIENT
  Sex: Male
  Weight: 91 kg

DRUGS (6)
  1. SU-011,248 [Suspect]
     Indication: METASTATIC RENAL CELL CARCINOMA
     Route: 048
  2. GLUCOBAY [Concomitant]
     Indication: DIABETES MELLITUS
     Route: 048
     Dates: start: 20020101, end: 20060522
  3. GLUCOBAY [Concomitant]
     Route: 048
     Dates: start: 20060609, end: 20060730
  4. SIMVASTATIN [Concomitant]
     Indication: HYPERLIPIDAEMIA
     Route: 048
     Dates: start: 20060201, end: 20060522
  5. MOVICOL [Concomitant]
     Indication: CONSTIPATION
  6. LACTULOSE [Concomitant]
     Indication: CONSTIPATION
     Dates: start: 20040101, end: 20061201

REACTIONS (1)
  - SYNCOPE [None]
